FAERS Safety Report 8619231-X (Version None)
Quarter: 2012Q3

REPORT INFORMATION
  Report Type: 
  Country: None (occurrence: None)
  Receive Date: 20120824
  Receipt Date: 20120815
  Transmission Date: 20120928
  Serious: Yes (Life-Threatening, Hospitalization)
  Sender: FDA-Public Use
  Company Number: GB-NOVOPROD-358219

PATIENT
  Age: 76 Year
  Sex: Male

DRUGS (3)
  1. GLICLAZIDE [Concomitant]
     Dosage: 80 MG, BID
     Route: 048
     Dates: end: 20120525
  2. METFORMIN HCL [Concomitant]
     Dosage: 1 G, TID
     Route: 048
  3. VICTOZA [Suspect]
     Indication: PRODUCT USED FOR UNKNOWN INDICATION
     Dosage: 1.2 MG, QD
     Route: 058
     Dates: start: 20110608, end: 20120525

REACTIONS (2)
  - ABDOMINAL PAIN [None]
  - PANCREATITIS [None]
